FAERS Safety Report 25865932 (Version 1)
Quarter: 2025Q3

REPORT INFORMATION
  Report Type: Spontaneous
  Country: US (occurrence: US)
  Receive Date: 20250930
  Receipt Date: 20250930
  Transmission Date: 20251021
  Serious: No
  Sender: BAUSCH AND LOMB
  Company Number: US-BAUSCH-BH-2025-017936

PATIENT
  Sex: Female
  Weight: 75.3 kg

DRUGS (3)
  1. XIFAXAN [Suspect]
     Active Substance: RIFAXIMIN
     Indication: Gastrointestinal microorganism overgrowth
     Route: 048
  2. XIFAXAN [Suspect]
     Active Substance: RIFAXIMIN
     Indication: Crohn^s disease
  3. XIFAXAN [Suspect]
     Active Substance: RIFAXIMIN
     Indication: Off label use

REACTIONS (6)
  - Gastrointestinal microorganism overgrowth [Unknown]
  - Crohn^s disease [Unknown]
  - Condition aggravated [Unknown]
  - Off label use [Unknown]
  - Insurance issue [Unknown]
  - Drug effective for unapproved indication [Unknown]
